FAERS Safety Report 5754887-0 (Version None)
Quarter: 2008Q2

REPORT INFORMATION
  Report Type: 
  Country: None (occurrence: None)
  Receive Date: 20080531
  Receipt Date: 20071127
  Transmission Date: 20081010
  Serious: No
  Sender: FDA-Public Use
  Company Number: US-BOEHRINGER INGELHEIM GMBH, GERMANY-2007-BP-02509BP

PATIENT
  Sex: Male
  Weight: 87 kg

DRUGS (29)
  1. MIRAPEX [Suspect]
     Indication: RESTLESS LEGS SYNDROME
     Dates: start: 20011121, end: 20060201
  2. CELEXA [Concomitant]
     Indication: DEPRESSION
  3. CELEXA [Concomitant]
     Indication: SEASONAL AFFECTIVE DISORDER
  4. PREDNISONE TAB [Concomitant]
     Indication: POLYMYALGIA RHEUMATICA
  5. KLONOPIN [Concomitant]
     Indication: RESTLESS LEGS SYNDROME
  6. PROVIGIL [Concomitant]
     Indication: SOMNOLENCE
  7. REQUIP [Concomitant]
     Indication: RESTLESS LEGS SYNDROME
  8. SINEMET [Concomitant]
     Indication: RESTLESS LEGS SYNDROME
  9. NEURONTIN [Concomitant]
  10. PEPCID [Concomitant]
  11. CELEBREX [Concomitant]
  12. FOLIC ACID [Concomitant]
  13. ASPIRIN [Concomitant]
  14. BAYCOL [Concomitant]
  15. VITAMINS [Concomitant]
  16. DOXEPIN LIQUID [Concomitant]
  17. QUININE [Concomitant]
  18. PROTONIX [Concomitant]
  19. LIPITOR [Concomitant]
  20. ATROVENT [Concomitant]
  21. ASTELIN [Concomitant]
  22. NEXIUM [Concomitant]
  23. LEXAPRO [Concomitant]
  24. TOPROL-XL [Concomitant]
  25. LEVAQUIN [Concomitant]
  26. CRESTOR [Concomitant]
  27. NASONEX [Concomitant]
  28. ALLEGRA [Concomitant]
  29. VIAGRA [Concomitant]

REACTIONS (8)
  - ANXIETY [None]
  - DEPRESSION [None]
  - EMOTIONAL DISTRESS [None]
  - FEAR [None]
  - PAIN [None]
  - PATHOLOGICAL GAMBLING [None]
  - STRESS [None]
  - SUICIDAL IDEATION [None]
